FAERS Safety Report 14533897 (Version 1)
Quarter: 2018Q1

REPORT INFORMATION
  Report Type: Spontaneous
  Country: US (occurrence: US)
  Receive Date: 20180215
  Receipt Date: 20180215
  Transmission Date: 20180509
  Serious: Yes (Other)
  Sender: FDA-Public Use
  Company Number: US-ROCHE-2071919

PATIENT
  Sex: Female
  Weight: 138.02 kg

DRUGS (1)
  1. OCREVUS [Suspect]
     Active Substance: OCRELIZUMAB
     Indication: MULTIPLE SCLEROSIS
     Dosage: RECEIVED A DOSE ON DAY 1 AND DAY 15 ;ONGOING: UNKNOWN
     Route: 042
     Dates: start: 20170802

REACTIONS (1)
  - Clostridium difficile infection [Recovered/Resolved]
